FAERS Safety Report 9770980 (Version 2)
Quarter: 2014Q1

REPORT INFORMATION
  Report Type: Spontaneous
  Country: IT (occurrence: IT)
  Receive Date: 20131218
  Receipt Date: 20140205
  Transmission Date: 20141002
  Serious: Yes (Other)
  Sender: FDA-Public Use
  Company Number: PHHY2013IT146014

PATIENT
  Age: 72 Year
  Sex: Male

DRUGS (11)
  1. ATORVASTATIN [Suspect]
     Dosage: 40 MG, UNK
  2. GLYCERYL TRINITRATE [Interacting]
     Dosage: 10 MG, PER DAY
     Route: 062
  3. ACETYLSALICYLIC ACID [Interacting]
     Dosage: 100 MG, PER DAY
  4. VALSARTAN [Interacting]
     Dosage: 20 MG, PER DAY
  5. BISOPROLOL [Interacting]
     Dosage: 2.5 MG, PER DAY
  6. ALLOPURINOL [Interacting]
     Dosage: 150 MG, PER DAY
  7. FUROSEMIDE [Interacting]
     Dosage: 25 MG, TWICE A WEEK
  8. OMEPRAZOLE [Interacting]
     Dosage: 20 MG, PER DAY
  9. QUETIAPINE [Interacting]
     Indication: COGNITIVE DISORDER
     Dosage: 50 MG, PER DAY
  10. SERTRALINE [Interacting]
     Indication: COGNITIVE DISORDER
     Dosage: 25 MG, PER DAY
  11. RANOLAZINE [Interacting]
     Indication: ANGINA PECTORIS
     Dosage: 1000 MG, PER DAY

REACTIONS (9)
  - Rhabdomyolysis [Unknown]
  - Vomiting [Unknown]
  - Gait disturbance [Unknown]
  - Malaise [Unknown]
  - Myalgia [Unknown]
  - Muscular weakness [Recovered/Resolved]
  - Fall [Unknown]
  - Drug interaction [Unknown]
  - Nausea [Unknown]
